FAERS Safety Report 24182556 (Version 3)
Quarter: 2024Q3

REPORT INFORMATION
  Report Type: Report from Study
  Country: IL (occurrence: IL)
  Receive Date: 20240807
  Receipt Date: 20240831
  Transmission Date: 20241017
  Serious: Yes (Other)
  Sender: ROCHE
  Company Number: IL-ROCHE-10000049226

PATIENT
  Sex: Female

DRUGS (6)
  1. OCREVUS [Suspect]
     Active Substance: OCRELIZUMAB
     Indication: Relapsing multiple sclerosis
     Route: 042
     Dates: start: 20180401
  2. AMLODIPINE [Concomitant]
     Active Substance: AMLODIPINE BESYLATE
  3. EZECOR [Concomitant]
  4. LEVOTHYROXINE [Concomitant]
     Active Substance: LEVOTHYROXINE\LEVOTHYROXINE SODIUM
  5. VALSARTAN [Concomitant]
     Active Substance: VALSARTAN
  6. Cadex [Concomitant]

REACTIONS (7)
  - Pneumonia [Not Recovered/Not Resolved]
  - Immunodeficiency [Not Recovered/Not Resolved]
  - Coronavirus infection [Not Recovered/Not Resolved]
  - Urinary tract infection [Not Recovered/Not Resolved]
  - Mood altered [Not Recovered/Not Resolved]
  - Visual acuity reduced [Not Recovered/Not Resolved]
  - Hypoacusis [Not Recovered/Not Resolved]
